FAERS Safety Report 8365115-4 (Version None)
Quarter: 2012Q2

REPORT INFORMATION
  Report Type: 
  Country: None (occurrence: None)
  Receive Date: 20120516
  Receipt Date: 20120510
  Transmission Date: 20120825
  Serious: No
  Sender: FDA-Public Use
  Company Number: US-PFIZER INC-2012114965

PATIENT
  Sex: Female
  Weight: 86 kg

DRUGS (3)
  1. LEVOXYL [Suspect]
     Indication: HYPOTHYROIDISM
     Dosage: 50 UG, 1X/DAY
     Route: 048
     Dates: start: 20101001
  2. LEVOXYL [Suspect]
     Dosage: 75 UG, 1X/DAY
     Route: 048
  3. LEVOXYL [Suspect]
     Dosage: 75UG 5DAYS A WEEK AND 50UG 2 DAYS A WEEK
     Route: 048

REACTIONS (3)
  - PRURITUS [None]
  - PARAESTHESIA [None]
  - RASH [None]
